FAERS Safety Report 21166386 (Version 2)
Quarter: 2022Q3

REPORT INFORMATION
  Report Type: Spontaneous
  Country: JP (occurrence: JP)
  Receive Date: 20220803
  Receipt Date: 20220903
  Transmission Date: 20221027
  Serious: Yes (Other)
  Sender: FDA-Public Use
  Company Number: JP-AMGEN-JPNSP2022129528

PATIENT
  Age: 67 Year
  Sex: Female

DRUGS (1)
  1. BLINCYTO [Suspect]
     Active Substance: BLINATUMOMAB
     Indication: Acute lymphocytic leukaemia recurrent
     Dosage: UNK
     Route: 041

REACTIONS (4)
  - Hepatic function abnormal [Unknown]
  - Cytokine release syndrome [Recovered/Resolved]
  - Febrile neutropenia [Unknown]
  - Acute lymphocytic leukaemia recurrent [Unknown]
